FAERS Safety Report 12085410 (Version 1)
Quarter: 2016Q1

REPORT INFORMATION
  Report Type: Spontaneous
  Country: US (occurrence: US)
  Receive Date: 20160217
  Receipt Date: 20160217
  Transmission Date: 20160526
  Serious: Yes (Other)
  Sender: FDA-Public Use
  Company Number: US-TEVA-634804USA

PATIENT
  Age: 56 Year
  Sex: Female
  Weight: 88.53 kg

DRUGS (13)
  1. GLATOPA [Suspect]
     Active Substance: GLATIRAMER ACETATE
     Indication: MULTIPLE SCLEROSIS
     Dates: start: 201512
  2. DETROL LA [Concomitant]
     Active Substance: TOLTERODINE TARTRATE
     Indication: PRODUCT USED FOR UNKNOWN INDICATION
  3. CLONAZEPAM. [Concomitant]
     Active Substance: CLONAZEPAM
     Indication: ANXIETY
  4. TYLENOL WITH CODEINE [Concomitant]
     Active Substance: ACETAMINOPHEN\CODEINE PHOSPHATE
     Indication: INFLAMMATION
  5. LOW DOSE ASPIRIN [Concomitant]
     Active Substance: ASPIRIN
     Indication: MENOPAUSAL SYMPTOMS
  6. TIMOLOL. [Concomitant]
     Active Substance: TIMOLOL
     Indication: GLAUCOMA
  7. COPAXONE [Suspect]
     Active Substance: GLATIRAMER ACETATE
     Indication: MULTIPLE SCLEROSIS
     Dosage: UNKNOWN FORM STRENGTH
     Route: 058
     Dates: start: 200403, end: 201512
  8. MECLIZINE [Concomitant]
     Active Substance: MECLIZINE HYDROCHLORIDE
     Indication: NAUSEA
  9. FLUOXETINE [Concomitant]
     Active Substance: FLUOXETINE HYDROCHLORIDE
     Indication: DEPRESSION
  10. TRAVATAN Z [Concomitant]
     Active Substance: TRAVOPROST
     Indication: GLAUCOMA
  11. ADDERALL [Concomitant]
     Active Substance: AMPHETAMINE ASPARTATE\AMPHETAMINE SULFATE\DEXTROAMPHETAMINE SACCHARATE\DEXTROAMPHETAMINE SULFATE
     Indication: ASTHENIA
  12. NAPROSYN [Concomitant]
     Active Substance: NAPROXEN
     Indication: INFLAMMATION
  13. AMITRIPTYLINE [Concomitant]
     Active Substance: AMITRIPTYLINE
     Indication: MIGRAINE

REACTIONS (9)
  - Multiple sclerosis relapse [Unknown]
  - Nausea [Recovered/Resolved]
  - Hypoaesthesia [Not Recovered/Not Resolved]
  - Musculoskeletal pain [Recovered/Resolved]
  - Dizziness [Recovered/Resolved]
  - JC virus test positive [Unknown]
  - Musculoskeletal stiffness [Recovered/Resolved]
  - Paraesthesia [Recovered/Resolved]
  - Paraesthesia [Not Recovered/Not Resolved]

NARRATIVE: CASE EVENT DATE: 201512
